FAERS Safety Report 16230761 (Version 9)
Quarter: 2021Q4

REPORT INFORMATION
  Report Type: Report from Study
  Country: DE (occurrence: DE)
  Receive Date: 20190423
  Receipt Date: 20211012
  Transmission Date: 20220303
  Serious: Yes (Life-Threatening, Hospitalization, Other)
  Sender: FDA-Public Use
  Company Number: PHHY2018DE025110

PATIENT
  Age: 54 Year
  Sex: Female
  Weight: 83 kg

DRUGS (33)
  1. TRAMETINIB [Suspect]
     Active Substance: TRAMETINIB
     Indication: Metastatic malignant melanoma
     Dosage: 2 MG, QD
     Route: 048
     Dates: start: 20171010, end: 20180115
  2. TRAMETINIB [Suspect]
     Active Substance: TRAMETINIB
     Dosage: 2 MG, QD
     Route: 048
     Dates: start: 20180116, end: 20180207
  3. TRAMETINIB [Suspect]
     Active Substance: TRAMETINIB
     Dosage: 2 MG, QD
     Route: 048
     Dates: start: 20180208, end: 20180407
  4. TRAMETINIB [Suspect]
     Active Substance: TRAMETINIB
     Dosage: 2 MG, QD
     Route: 048
     Dates: start: 20200408, end: 20200520
  5. TRAMETINIB [Suspect]
     Active Substance: TRAMETINIB
     Dosage: 2 MG, QD
     Route: 048
     Dates: start: 20180527, end: 20200830
  6. TAFINLAR [Suspect]
     Active Substance: DABRAFENIB MESYLATE
     Indication: Metastatic malignant melanoma
     Dosage: 150 MG, BID
     Route: 048
     Dates: start: 20171010, end: 20180115
  7. TAFINLAR [Suspect]
     Active Substance: DABRAFENIB MESYLATE
     Dosage: 150 MG, BID
     Route: 048
     Dates: start: 20180116, end: 20180207
  8. TAFINLAR [Suspect]
     Active Substance: DABRAFENIB MESYLATE
     Dosage: 150 MG, BID
     Route: 048
     Dates: start: 20180208, end: 20180407
  9. TAFINLAR [Suspect]
     Active Substance: DABRAFENIB MESYLATE
     Dosage: 150 MG, BID
     Route: 048
     Dates: start: 20200408, end: 20200520
  10. TAFINLAR [Suspect]
     Active Substance: DABRAFENIB MESYLATE
     Dosage: 150 MG, BID
     Route: 048
     Dates: start: 20180527, end: 20200830
  11. LEVOTHYROXINE SODIUM [Concomitant]
     Active Substance: LEVOTHYROXINE SODIUM
     Indication: Hypothyroidism
     Dosage: 50 UG, QD
     Route: 048
     Dates: end: 20210303
  12. LEVOTHYROXINE SODIUM [Concomitant]
     Active Substance: LEVOTHYROXINE SODIUM
     Dosage: 75 UG, QD
     Route: 065
     Dates: start: 20210304, end: 20210407
  13. LEVOTHYROXINE SODIUM [Concomitant]
     Active Substance: LEVOTHYROXINE SODIUM
     Dosage: 100 UG, QD
     Route: 065
     Dates: start: 20210408
  14. SOOLANTRA [Concomitant]
     Active Substance: IVERMECTIN
     Indication: Product used for unknown indication
     Dosage: 1 MG, QD
     Route: 061
     Dates: start: 20180116
  15. SOOLANTRA [Concomitant]
     Active Substance: IVERMECTIN
     Dosage: 1 UNK (OINTMENT)
     Route: 061
     Dates: start: 20200907, end: 20201117
  16. IBUPROFEN [Concomitant]
     Active Substance: IBUPROFEN
     Indication: Product used for unknown indication
     Dosage: 400 MG, PRN
     Route: 048
     Dates: start: 20180517
  17. IBUPROFEN [Concomitant]
     Active Substance: IBUPROFEN
     Dosage: 300 MG, TID
     Route: 048
     Dates: start: 20190611, end: 20190716
  18. BEPANTHEN [Concomitant]
     Indication: Product used for unknown indication
     Dosage: 1 MG, PRN
     Route: 061
     Dates: start: 20180501, end: 20180612
  19. MONOVO [Concomitant]
     Indication: Product used for unknown indication
     Dosage: 1 MG, QD
     Route: 061
     Dates: start: 20180612
  20. METROCREME [Concomitant]
     Indication: Product used for unknown indication
     Dosage: 1 DF, QD (1 AS REQUIRED)
     Route: 061
     Dates: start: 20190716, end: 20190808
  21. CICLOPIROX [Concomitant]
     Active Substance: CICLOPIROX
     Indication: Product used for unknown indication
     Dosage: 1 DF, QD
     Route: 061
     Dates: start: 20190808
  22. NIVOLUMAB [Concomitant]
     Active Substance: NIVOLUMAB
     Indication: Malignant melanoma
     Dosage: 1 MG/KG, Q3W
     Route: 042
     Dates: start: 20200831, end: 20201119
  23. IPILIMUMAB [Concomitant]
     Active Substance: IPILIMUMAB
     Indication: Malignant melanoma
     Dosage: 3 MG/KG, Q3W
     Route: 042
     Dates: start: 20200831, end: 20201119
  24. LAMOTRIGINE [Concomitant]
     Active Substance: LAMOTRIGINE
     Indication: Product used for unknown indication
     Dosage: 100 MG, BID
     Route: 048
     Dates: start: 20200831
  25. ENCORAFENIB [Concomitant]
     Active Substance: ENCORAFENIB
     Indication: Malignant melanoma
     Dosage: 450 MG, QD
     Route: 065
     Dates: start: 20201117, end: 20210127
  26. ENCORAFENIB [Concomitant]
     Active Substance: ENCORAFENIB
     Dosage: 150 MG, QD
     Route: 048
     Dates: start: 20210128, end: 20210407
  27. ENCORAFENIB [Concomitant]
     Active Substance: ENCORAFENIB
     Dosage: 225 MG, QD
     Route: 048
     Dates: start: 20210408
  28. BINIMETINIB [Concomitant]
     Active Substance: BINIMETINIB
     Indication: Malignant melanoma
     Dosage: 45 MG, BID
     Route: 048
     Dates: start: 20201117, end: 20210127
  29. BINIMETINIB [Concomitant]
     Active Substance: BINIMETINIB
     Dosage: 15 MG, BID
     Route: 048
     Dates: start: 20210128, end: 20210407
  30. BINIMETINIB [Concomitant]
     Active Substance: BINIMETINIB
     Dosage: 30 MG, QD
     Route: 048
     Dates: start: 20210408
  31. LEVETIRACETAM [Concomitant]
     Active Substance: LEVETIRACETAM
     Indication: Product used for unknown indication
     Dosage: 1500 MG, BID
     Route: 048
     Dates: start: 20210128
  32. DEXAMETHASONE [Concomitant]
     Active Substance: DEXAMETHASONE
     Indication: Product used for unknown indication
     Dosage: 4 MG, BID
     Route: 048
     Dates: start: 20201102, end: 20210127
  33. PREDNISOLONE [Concomitant]
     Active Substance: PREDNISOLONE
     Indication: Product used for unknown indication
     Dosage: 12 MG, QD
     Route: 048
     Dates: start: 20210216

REACTIONS (29)
  - Sjogren^s syndrome [Not Recovered/Not Resolved]
  - Dry skin [Not Recovered/Not Resolved]
  - Skin erosion [Unknown]
  - Metastases to meninges [Recovering/Resolving]
  - Seizure [Recovered/Resolved]
  - Leukopenia [Recovering/Resolving]
  - Epistaxis [Recovered/Resolved]
  - Flatulence [Not Recovered/Not Resolved]
  - Mucosal dryness [Recovered/Resolved]
  - Nasal crusting [Recovering/Resolving]
  - Tinea faciei [Recovered/Resolved]
  - Tendonitis [Recovered/Resolved]
  - Arthralgia [Not Recovered/Not Resolved]
  - Oedema peripheral [Not Recovered/Not Resolved]
  - Myalgia [Recovering/Resolving]
  - Muscle spasms [Recovered/Resolved]
  - Cervical cyst [Recovering/Resolving]
  - Dermatitis acneiform [Not Recovered/Not Resolved]
  - Nausea [Recovered/Resolved]
  - Diarrhoea [Recovered/Resolved]
  - Skin plaque [Unknown]
  - Pustule [Recovered/Resolved]
  - Arthralgia [Recovered/Resolved]
  - Oedema [Recovered/Resolved]
  - Upper respiratory tract infection [Recovered/Resolved]
  - Plantar fasciitis [Recovered/Resolved]
  - Rash [Recovered/Resolved]
  - Dizziness [Recovering/Resolving]
  - Disturbance in attention [Recovering/Resolving]

NARRATIVE: CASE EVENT DATE: 20171201
